FAERS Safety Report 12493492 (Version 2)
Quarter: 2016Q3

REPORT INFORMATION
  Report Type: Spontaneous
  Country: PT (occurrence: PT)
  Receive Date: 20160623
  Receipt Date: 20160714
  Transmission Date: 20161109
  Serious: Yes (Death, Other)
  Sender: FDA-Public Use
  Company Number: PT-FRESENIUS KABI-FK201603798

PATIENT
  Age: 57 Year
  Sex: Female
  Weight: 54 kg

DRUGS (4)
  1. ZOLEDRONIC ACID [Concomitant]
     Active Substance: ZOLEDRONIC ACID
     Indication: METASTASES TO BONE
     Route: 065
  2. PACLITAXEL 6MG/ML CONCENTRATE FOR SOLUTION FOR INFUSION [Suspect]
     Active Substance: PACLITAXEL
     Indication: BREAST CANCER METASTATIC
     Route: 040
     Dates: start: 20160324, end: 20160517
  3. PERJETA [Suspect]
     Active Substance: PERTUZUMAB
     Indication: BREAST CANCER METASTATIC
     Route: 040
     Dates: start: 20160323, end: 20160503
  4. HERCEPTIN [Suspect]
     Active Substance: TRASTUZUMAB
     Indication: BREAST CANCER METASTATIC
     Route: 040
     Dates: start: 20160324, end: 20160503

REACTIONS (20)
  - Diarrhoea [Unknown]
  - Dyspnoea [Unknown]
  - Hypotension [Unknown]
  - C-reactive protein increased [Unknown]
  - Chills [Unknown]
  - Pneumonia [Unknown]
  - Mucosal inflammation [Unknown]
  - Respiratory failure [Unknown]
  - Hypocalcaemia [Unknown]
  - Leukopenia [Unknown]
  - Septic shock [Fatal]
  - Dysuria [Unknown]
  - Blood lactate dehydrogenase increased [Unknown]
  - Neutrophilia [Unknown]
  - Oxygen saturation decreased [Unknown]
  - Pyrexia [Unknown]
  - Sepsis [Unknown]
  - Cough [Unknown]
  - Hypoxia [Unknown]
  - Productive cough [Unknown]

NARRATIVE: CASE EVENT DATE: 2016
